FAERS Safety Report 9475027 (Version 2)
Quarter: 2013Q4

REPORT INFORMATION
  Report Type: Spontaneous
  Country: JP (occurrence: None)
  Receive Date: 20130820
  Receipt Date: 20131230
  Transmission Date: 20140711
  Serious: Yes (Disabling)
  Sender: FDA-Public Use
  Company Number: 1850157

PATIENT
  Sex: Male

DRUGS (35)
  1. DEXMEDETOMIDINE HYDROCHLORIDE [Suspect]
     Indication: PRODUCT USED FOR UNKNOWN INDICATION
     Dosage: CENTRAL VEIN INV
     Route: 042
     Dates: start: 20121206, end: 20121210
  2. PROPOFOL [Suspect]
     Indication: SEDATION
     Dosage: CENTRAL VEIN, INTRAVENOUS
     Route: 042
     Dates: start: 20121206, end: 20121207
  3. RISPERIDONE [Suspect]
     Indication: SEDATION
     Route: 048
     Dates: start: 20121209, end: 20121210
  4. HALOPERIDOL [Suspect]
     Indication: SEDATION
     Dosage: CENTRAL VEIN,
     Dates: start: 20121207, end: 20121209
  5. MIDAZOLAM [Suspect]
     Indication: SEDATION
     Dosage: CENTRAL VEIN
     Dates: start: 20121207, end: 20121210
  6. DOXAZOSIN MESILATE [Concomitant]
  7. LOXOPROFEN SODIUM [Concomitant]
  8. TRICHLORMETHIAZIDE [Concomitant]
  9. SPIRONOLACTONE [Concomitant]
  10. FUROSEMIDE [Concomitant]
  11. POTASSIUM ASPARTATE [Concomitant]
  12. VALSARTAN [Concomitant]
  13. MINOCYCLINE HYDROCHLORIDE [Concomitant]
  14. CLINIDIPINE [Concomitant]
  15. REBAMIPIDE [Concomitant]
  16. SARPOGRELATE HYDROCHLORIDE [Concomitant]
  17. BISOPROLOL FUMARATE [Concomitant]
  18. DORIPENEM [Concomitant]
  19. VANCOMYCIN HYDROCHLORIDE [Concomitant]
  20. DILTIAZEM HYDROCHLORIDE [Concomitant]
  21. DIGOXIN [Concomitant]
  22. DANTROLENE SODIUM [Concomitant]
  23. PROPRANOLOL HYDROCHLORIDE [Concomitant]
  24. ALL OTHER THERAPEUTIC PRODUCTS [Concomitant]
  25. AMPICILLIN SODIUM W/SULBACTAM SODIUM [Concomitant]
  26. BIPERIDEN [Concomitant]
  27. FUROSEMIDE [Concomitant]
  28. CEFAZOLIN SODIUM [Concomitant]
  29. CARPERITIDE [Concomitant]
  30. INSULIN HUMAN [Concomitant]
  31. FENTANYL [Concomitant]
  32. LANSOPRAZOLE [Concomitant]
  33. CEFTAZIDIME [Concomitant]
  34. NORADRENALINE [Concomitant]
  35. NICARDIPINE HYDROCHLORIDE [Concomitant]

REACTIONS (7)
  - Rhabdomyolysis [None]
  - Renal failure [None]
  - Pericardial effusion [None]
  - Cardiac tamponade [None]
  - Duodenal ulcer [None]
  - Muscular weakness [None]
  - Haemoglobin decreased [None]
